FAERS Safety Report 16897964 (Version 2)
Quarter: 2019Q4

REPORT INFORMATION
  Report Type: Spontaneous
  Country: IT (occurrence: IT)
  Receive Date: 20191009
  Receipt Date: 20191011
  Transmission Date: 20200122
  Serious: Yes (Hospitalization, Other)
  Sender: FDA-Public Use
  Company Number: IT-PFIZER INC-2019431952

PATIENT
  Age: 80 Year
  Sex: Female
  Weight: 73 kg

DRUGS (12)
  1. ALLOPURINOL. [Concomitant]
     Active Substance: ALLOPURINOL
     Indication: HYPERURICAEMIA
     Dosage: 150 MILLIGRAM, QD
     Route: 065
     Dates: start: 20160115, end: 20160717
  2. ALPRAZOLAM. [Concomitant]
     Active Substance: ALPRAZOLAM
     Indication: INSOMNIA
     Dosage: 0.5 MILLIGRAM, QD
     Dates: start: 20150713, end: 20160717
  3. RIVAROXABAN [Concomitant]
     Active Substance: RIVAROXABAN
     Indication: ATRIAL FIBRILLATION
     Dosage: 15 MILLIGRAM, QD
     Dates: start: 20160405, end: 20160717
  4. PANTOPRAZOLE [Suspect]
     Active Substance: PANTOPRAZOLE
     Indication: COUGH
     Dosage: 40 MILLIGRAM, QD
     Dates: start: 20160317, end: 20160717
  5. PLACEBO [Suspect]
     Active Substance: UNSPECIFIED INGREDIENT
     Indication: CARDIAC FAILURE CHRONIC
     Dosage: UNK
     Route: 048
     Dates: start: 20160323
  6. FUROSEMIDE. [Concomitant]
     Active Substance: FUROSEMIDE
     Indication: CARDIAC FAILURE
     Dosage: 50 MILLIGRAM, 1X/DAY, QD
     Dates: start: 20160405, end: 20160717
  7. EZETIMIBE. [Concomitant]
     Active Substance: EZETIMIBE
     Indication: HYPERCHOLESTEROLAEMIA
     Dosage: 10 MILLIGRAM, QD
     Dates: start: 20151113, end: 20160717
  8. VALSARTAN. [Suspect]
     Active Substance: VALSARTAN
     Indication: CARDIAC FAILURE CHRONIC
     Dosage: 320 MILLIGRAM, QD
     Route: 048
     Dates: start: 20160323
  9. BISOPROLOL [Concomitant]
     Active Substance: BISOPROLOL
     Indication: ATRIAL FIBRILLATION
     Dosage: 7.5 MILLIGRAM, QD
     Dates: start: 20160317, end: 20160717
  10. LAMOTRIGINA [Concomitant]
     Active Substance: LAMOTRIGINE
     Indication: EPILEPSY
     Dosage: 100 MILLIGRAM, QD
     Dates: start: 20100611, end: 20160717
  11. RANITIDINA [RANITIDINE HYDROCHLORIDE] [Concomitant]
     Indication: COUGH
     Dosage: 150 MILLIGRAM, QD
     Dates: start: 20160318
  12. EUTIROX [Concomitant]
     Active Substance: LEVOTHYROXINE SODIUM
     Indication: HYPOTHYROIDISM
     Dosage: 75 MILLIGRAM, QD
     Dates: start: 200506, end: 20160717

REACTIONS (4)
  - Hyponatraemia [Recovering/Resolving]
  - Tremor [Recovering/Resolving]
  - Product use in unapproved indication [Unknown]
  - Off label use [Unknown]

NARRATIVE: CASE EVENT DATE: 20160717
